FAERS Safety Report 18520373 (Version 6)
Quarter: 2024Q1

REPORT INFORMATION
  Report Type: Other
  Country: DE (occurrence: DE)
  Receive Date: 20201118
  Receipt Date: 20240131
  Transmission Date: 20240410
  Serious: Yes (Hospitalization)
  Sender: FDA-Public Use
  Company Number: DE-ROCHE-2613943

PATIENT
  Age: 52 Year
  Sex: Female
  Weight: 56 kg

DRUGS (9)
  1. OCREVUS [Suspect]
     Active Substance: OCRELIZUMAB
     Indication: Relapsing multiple sclerosis
     Route: 042
     Dates: start: 20190321
  2. OCREVUS [Suspect]
     Active Substance: OCRELIZUMAB
     Route: 042
     Dates: start: 20180903, end: 20180917
  3. RANITIDINE HYDROCHLORIDE [Concomitant]
     Active Substance: RANITIDINE HYDROCHLORIDE
     Indication: Premedication
     Route: 042
     Dates: start: 20180903, end: 20210408
  4. CITALOPRAM [Concomitant]
     Active Substance: CITALOPRAM HYDROBROMIDE
     Indication: Depression
     Dosage: DEFINITION OF THE INTERVAL: AS REQUIRED
     Route: 048
     Dates: start: 20180628, end: 20181106
  5. CITALOPRAM [Concomitant]
     Active Substance: CITALOPRAM HYDROBROMIDE
     Indication: Persistent depressive disorder
     Dosage: DEFINITION OF THE INTERVAL: AS REQUIRED
     Route: 048
     Dates: start: 20181107, end: 20210413
  6. CITALOPRAM [Concomitant]
     Active Substance: CITALOPRAM HYDROBROMIDE
     Dosage: DEFINITION OF THE INTERVAL: AS REQUIRED
     Route: 048
     Dates: start: 20210413
  7. GABAPENTIN [Concomitant]
     Active Substance: GABAPENTIN
     Indication: Muscular weakness
     Route: 048
     Dates: start: 20190124
  8. CIMETIDIN [Concomitant]
     Route: 042
     Dates: start: 20210408
  9. IBUPROFEN [Concomitant]
     Active Substance: IBUPROFEN
     Dosage: DEFINITION OF THE INTERVAL: AS REQUIRED
     Route: 048

REACTIONS (4)
  - Rotator cuff syndrome [Recovered/Resolved]
  - Bursitis [Recovered/Resolved]
  - Osteoarthritis [Unknown]
  - Ligament disorder [Recovered/Resolved]

NARRATIVE: CASE EVENT DATE: 20200519
